FAERS Safety Report 8400075-9 (Version None)
Quarter: 2012Q2

REPORT INFORMATION
  Report Type: 
  Country: None (occurrence: None)
  Receive Date: 20120531
  Receipt Date: 20120521
  Transmission Date: 20120825
  Serious: Yes (Death)
  Sender: FDA-Public Use
  Company Number: BE-VALEANT-2012VX002364

PATIENT

DRUGS (5)
  1. CARBOPLATIN [Suspect]
     Dosage: DOSE UNIT:5
     Route: 042
  2. CETUXIMAB [Suspect]
     Route: 042
  3. CISPLATIN [Suspect]
     Route: 042
  4. FLUOROURACIL [Suspect]
     Route: 065
  5. CETUXIMAB [Suspect]
     Route: 042

REACTIONS (1)
  - CARDIAC DISORDER [None]
